FAERS Safety Report 11391615 (Version 1)
Quarter: 2015Q3

REPORT INFORMATION
  Report Type: Spontaneous
  Country: CA (occurrence: CA)
  Receive Date: 20150818
  Receipt Date: 20150818
  Transmission Date: 20151125
  Serious: Yes (Other)
  Sender: FDA-Public Use
  Company Number: CA-TEVA-586862ACC

PATIENT
  Age: 35 Year
  Sex: Male
  Weight: 74.91 kg

DRUGS (2)
  1. TERBINAFINE. [Suspect]
     Active Substance: TERBINAFINE
     Indication: ONYCHOMYCOSIS
     Dosage: 1 DOSAGE FORMS DAILY;
     Route: 065
  2. PATANOL OPHTHALMIC SOLUTION [Concomitant]
     Route: 065

REACTIONS (2)
  - Dyspepsia [Recovered/Resolved]
  - Vision blurred [Recovered/Resolved]
